FAERS Safety Report 13069158 (Version 1)
Quarter: 2016Q4

REPORT INFORMATION
  Report Type: Spontaneous
  Country: US (occurrence: US)
  Receive Date: 20161228
  Receipt Date: 20161228
  Transmission Date: 20170207
  Serious: No
  Sender: FDA-Public Use
  Company Number: US-PFIZER INC-2016585400

PATIENT
  Age: 31 Year
  Sex: Female

DRUGS (1)
  1. LEVETIRACETAM. [Suspect]
     Active Substance: LEVETIRACETAM
     Dosage: 250 MG, 2X/DAY
     Route: 048
     Dates: start: 20160927

REACTIONS (3)
  - Affect lability [Unknown]
  - Drug ineffective [Unknown]
  - Irritability [Unknown]
